FAERS Safety Report 17587324 (Version 1)
Quarter: 2020Q1

REPORT INFORMATION
  Report Type: Spontaneous
  Country: ES (occurrence: ES)
  Receive Date: 20200326
  Receipt Date: 20200326
  Transmission Date: 20200409
  Serious: Yes (Other)
  Sender: FDA-Public Use
  Company Number: ES-JNJFOC-20200329738

PATIENT
  Age: 67 Year
  Sex: Female

DRUGS (1)
  1. DUROGESIC MATRIX [Suspect]
     Active Substance: FENTANYL
     Indication: PAIN
     Route: 065

REACTIONS (4)
  - Fall [Unknown]
  - Dizziness [Unknown]
  - Hip fracture [Unknown]
  - Confusional state [Unknown]
